FAERS Safety Report 5349016-1 (Version None)
Quarter: 2007Q2

REPORT INFORMATION
  Report Type: 
  Country: None (occurrence: None)
  Receive Date: 20070516
  Receipt Date: 20070228
  Transmission Date: 20071010
  Serious: No
  Sender: FDA-Public Use
  Company Number: 200711472US

PATIENT
  Age: 39 Year
  Sex: Male

DRUGS (5)
  1. APIDRA [Suspect]
     Indication: DIABETES MELLITUS INSULIN-DEPENDENT
     Dosage: AC
     Dates: start: 20061201
  2. OPTICLIK [Suspect]
     Dates: start: 20061201
  3. LANTUS [Suspect]
     Dosage: 40 U HS
     Dates: start: 20061201
  4. OPTICLIK [Suspect]
     Dates: start: 20061201
  5. ESCITALOPRAM OXALATE (LEXAPRO) [Concomitant]

REACTIONS (8)
  - BACK PAIN [None]
  - BLOOD GLUCOSE INCREASED [None]
  - DYSPEPSIA [None]
  - HEADACHE [None]
  - MALAISE [None]
  - MEDICATION ERROR [None]
  - NAUSEA [None]
  - PAIN [None]
